FAERS Safety Report 17599346 (Version 1)
Quarter: 2020Q1

REPORT INFORMATION
  Report Type: Report from Study
  Country: US (occurrence: US)
  Receive Date: 20200330
  Receipt Date: 20200330
  Transmission Date: 20200409
  Serious: Yes (Other)
  Sender: FDA-Public Use
  Company Number: US-009507513-2001USA011047

PATIENT
  Age: 76 Year
  Sex: Male

DRUGS (5)
  1. CARBOPLATIN. [Concomitant]
     Active Substance: CARBOPLATIN
     Dosage: UNK
     Dates: start: 20190926, end: 20191218
  2. KEYTRUDA [Suspect]
     Active Substance: PEMBROLIZUMAB
     Indication: LUNG NEOPLASM MALIGNANT
     Dosage: UNK, CYCLICAL
     Dates: start: 20190926, end: 20191017
  3. XGEVA [Suspect]
     Active Substance: DENOSUMAB
     Indication: METASTASES TO BONE
     Dosage: UNK
     Dates: start: 20190926
  4. ABRAXANE [Concomitant]
     Active Substance: PACLITAXEL
     Dosage: UNK
     Dates: start: 20190926, end: 20191218
  5. KEYTRUDA [Suspect]
     Active Substance: PEMBROLIZUMAB
     Dosage: UNK, CYCLICAL
     Dates: start: 20191113, end: 20191218

REACTIONS (10)
  - Neutropenia [Recovered/Resolved]
  - Decreased appetite [Unknown]
  - Iron deficiency anaemia [Unknown]
  - Hypothyroidism [Recovered/Resolved]
  - Transaminases increased [Unknown]
  - Erythema [Unknown]
  - Pneumothorax [Recovered/Resolved]
  - Malignant neoplasm progression [Unknown]
  - Pancreatitis [Unknown]
  - Urinary tract infection bacterial [Recovered/Resolved]

NARRATIVE: CASE EVENT DATE: 2019
